FAERS Safety Report 8044006-2 (Version None)
Quarter: 2012Q1

REPORT INFORMATION
  Report Type: 
  Country: None (occurrence: None)
  Receive Date: 20120113
  Receipt Date: 20120105
  Transmission Date: 20120608
  Serious: Yes (Other)
  Sender: FDA-Public Use
  Company Number: US-ELI_LILLY_AND_COMPANY-US201110006223

PATIENT
  Age: 21 Year
  Sex: Female
  Weight: 59.41 kg

DRUGS (3)
  1. VALIUM [Concomitant]
  2. ORAL CONTRACEPTIVE NOS [Concomitant]
  3. STRATTERA [Suspect]
     Indication: ATTENTION DEFICIT/HYPERACTIVITY DISORDER
     Dosage: 80 MG, QD
     Route: 048
     Dates: start: 20110620, end: 20110718

REACTIONS (3)
  - AGITATION [None]
  - SUICIDAL BEHAVIOUR [None]
  - AGGRESSION [None]
